FAERS Safety Report 8536922-X (Version None)
Quarter: 2012Q3

REPORT INFORMATION
  Report Type: 
  Country: None (occurrence: None)
  Receive Date: 20120713
  Receipt Date: 20120628
  Transmission Date: 20120928
  Serious: Yes (Other)
  Sender: FDA-Public Use
  Company Number: HA12-200-AE

PATIENT
  Age: 59 Year
  Sex: Female
  Weight: 72.5755 kg

DRUGS (7)
  1. NAPROXEN (ALEVE) [Concomitant]
  2. NAPROXEN [Concomitant]
  3. ASPIRIN [Concomitant]
  4. NAC (N-ACETYL CYATEINE) [Concomitant]
  5. BACLOFEN [Concomitant]
  6. GABAPENTIN [Suspect]
     Indication: MUSCLE RELAXANT THERAPY
     Dosage: 2 CAPS EVERY 12 HRS, ORAL
     Route: 048
     Dates: start: 20120417, end: 20120421
  7. HYDROCODONE [Concomitant]

REACTIONS (5)
  - THINKING ABNORMAL [None]
  - DIZZINESS [None]
  - GAIT DISTURBANCE [None]
  - GRAND MAL CONVULSION [None]
  - DRUG INEFFECTIVE [None]
